FAERS Safety Report 5177907-3 (Version None)
Quarter: 2006Q4

REPORT INFORMATION
  Report Type: 
  Country: None (occurrence: None)
  Receive Date: 20061218
  Receipt Date: 20060726
  Transmission Date: 20070319
  Serious: No
  Sender: FDA-Public Use
  Company Number: US-AMGEN-KDL187922

PATIENT
  Sex: Female

DRUGS (3)
  1. ENBREL [Suspect]
     Indication: RHEUMATOID ARTHRITIS
     Route: 058
     Dates: start: 20050726, end: 20060108
  2. ENBREL [Suspect]
     Indication: JUVENILE ARTHRITIS
  3. METHOTREXATE [Concomitant]
     Route: 048
     Dates: start: 20030101

REACTIONS (3)
  - CONDITION AGGRAVATED [None]
  - JUVENILE ARTHRITIS [None]
  - RHEUMATOID ARTHRITIS [None]
